FAERS Safety Report 5865638-3 (Version None)
Quarter: 2008Q3

REPORT INFORMATION
  Report Type: 
  Country: None (occurrence: None)
  Receive Date: 20080829
  Receipt Date: 20080828
  Transmission Date: 20090109
  Serious: Yes (Hospitalization)
  Sender: FDA-Public Use
  Company Number: DK-BRISTOL-MYERS SQUIBB COMPANY-14317481

PATIENT
  Age: 34 Year
  Sex: Female
  Weight: 66 kg

DRUGS (10)
  1. ETOPOSIDE [Suspect]
     Indication: ACUTE LEUKAEMIA IN REMISSION
  2. NOXAFIL [Suspect]
     Indication: CANDIDIASIS
     Dosage: MIXTURE
     Dates: start: 20071019
  3. ONDANSETRON [Suspect]
     Indication: PROPHYLAXIS OF NAUSEA AND VOMITING
  4. CYTARABINE [Suspect]
     Indication: ACUTE LEUKAEMIA IN REMISSION
  5. PANTOPRAZOLE SODIUM [Concomitant]
  6. VOGALENE [Concomitant]
  7. KALEORID [Concomitant]
  8. DEXAMETHASONE TAB [Concomitant]
  9. ACYCLOVIR [Concomitant]
  10. ALLOPURINOL [Concomitant]

REACTIONS (1)
  - SINOATRIAL BLOCK [None]
